FAERS Safety Report 25519582 (Version 1)
Quarter: 2025Q3

REPORT INFORMATION
  Report Type: Spontaneous
  Country: CN (occurrence: CN)
  Receive Date: 20250704
  Receipt Date: 20250704
  Transmission Date: 20251020
  Serious: Yes (Hospitalization)
  Sender: COHERUS
  Company Number: CN-SHANGHAI JUNSHI BIOSCIENCES CO., LTD.-CN2025014639

PATIENT

DRUGS (3)
  1. TORIPALIMAB [Suspect]
     Active Substance: TORIPALIMAB
     Indication: Metastatic squamous cell carcinoma
     Dosage: 240 MG, EVERY 21 DAYS
     Route: 041
     Dates: start: 20250414, end: 20250414
  2. DOCETAXEL [Suspect]
     Active Substance: DOCETAXEL
     Indication: Metastatic squamous cell carcinoma
     Dosage: 4 ML, EVERY 21 DAYS
     Route: 041
     Dates: start: 20250414, end: 20250414
  3. CISPLATIN [Suspect]
     Active Substance: CISPLATIN
     Indication: Metastatic squamous cell carcinoma
     Dosage: 30 MG, EVERY 21 DAYS
     Route: 041
     Dates: start: 20250414, end: 20250416

REACTIONS (1)
  - Myelosuppression [Recovering/Resolving]

NARRATIVE: CASE EVENT DATE: 20250422
